FAERS Safety Report 10032416 (Version 2)
Quarter: 2014Q1

REPORT INFORMATION
  Report Type: Spontaneous
  Country: GB (occurrence: None)
  Receive Date: 20140320
  Receipt Date: 20140326
  Transmission Date: 20141002
  Serious: Yes (Hospitalization)
  Sender: FDA-Public Use
  Company Number: GB-I09001-14-00035

PATIENT
  Age: 59 Year
  Sex: Male
  Weight: 76 kg

DRUGS (1)
  1. INDOMETHACIN [Suspect]
     Indication: GOUT
     Route: 048
     Dates: start: 20140211, end: 20140221

REACTIONS (2)
  - Pancreatitis [None]
  - Overdose [None]
